FAERS Safety Report 9519820 (Version 1)
Quarter: 2013Q1

REPORT INFORMATION
  Report Type: Spontaneous
  Country: US (occurrence: None)
  Receive Date: 20130305
  Receipt Date: 20130305
  Transmission Date: 20140127
  Serious: Yes (Other)
  Sender: FDA-Public Use
  Company Number: 163-21880-12081217

PATIENT
  Age: 80 Year
  Sex: Female
  Weight: 68.9 kg

DRUGS (18)
  1. REVLIMID (LENALIDOMIDE) (CAPSULES) [Suspect]
     Indication: PLASMA CELL MYELOMA
     Route: 048
     Dates: start: 20120727, end: 20120731
  2. VITAMIN D (ERGOCALCIFEROL) [Concomitant]
  3. ALPHA LIPOIC ACID (THIOCTIC ACID) [Concomitant]
  4. SENNA [Concomitant]
  5. ASPIRIN (ACETYLSALICYLIC ACID) [Concomitant]
  6. VITAMINS [Concomitant]
  7. DOCUSATE SODIUM (DOCUSATE SODIUM) [Concomitant]
  8. GEMFIBROZIL (GEMFIBROZIL) [Concomitant]
  9. AMLODIPINE (AMLODIPINE) [Concomitant]
  10. ALLOPURINOL [Concomitant]
  11. PANTOPRAZOLE (PANTOPRAZOLE) [Concomitant]
  12. SERTRALINE (SERTRALINE) [Concomitant]
  13. GLUTAMINE (LEVOGLUTAMIDE) [Concomitant]
  14. DEXAMETHASONE (DEXAMETHASONE) [Concomitant]
  15. ACYCLOVIR (ACICLOVIR) (ACICLOVIR) [Concomitant]
  16. ONDANSETRON (ONDANSETRON) [Concomitant]
  17. LOSARTAN (LOSARTAN) [Concomitant]
  18. HYDROCODONE/ACETAMINOPHEN (REMEDEINE) [Concomitant]

REACTIONS (4)
  - Neutropenia [None]
  - Upper respiratory tract infection [None]
  - Pruritus [None]
  - Rash [None]
